FAERS Safety Report 6981277-5 (Version None)
Quarter: 2010Q3

REPORT INFORMATION
  Report Type: 
  Country: None (occurrence: None)
  Receive Date: 20100827
  Receipt Date: 20090903
  Transmission Date: 20110219
  Serious: Yes (Other)
  Sender: FDA-Public Use
  Company Number: 2009243104

PATIENT
  Sex: Male
  Weight: 59 kg

DRUGS (8)
  1. VFEND [Suspect]
     Indication: ASPERGILLOSIS
     Dosage: 200 MG, 2X/DAY, INTRAVENOUS
     Route: 042
  2. SPIRIVA [Concomitant]
  3. PREDNISONE [Concomitant]
  4. POTASSIUM (POTASSIUM) [Concomitant]
  5. MICAFUNGIN SODIUM (MICAFUNGIN SODIUM) [Concomitant]
  6. MEGACE [Concomitant]
  7. LASIX [Concomitant]
  8. FLOVENT [Concomitant]

REACTIONS (1)
  - TACHYCARDIA [None]
